FAERS Safety Report 14193222 (Version 1)
Quarter: 2017Q4

REPORT INFORMATION
  Report Type: Spontaneous
  Country: US (occurrence: US)
  Receive Date: 20171115
  Receipt Date: 20171115
  Transmission Date: 20180321
  Serious: No
  Sender: FDA-Public Use
  Company Number: US-BAUSCH-SYM-2013-03583

PATIENT
  Age: 56 Year
  Sex: Female

DRUGS (5)
  1. LAMICTAL [Concomitant]
     Active Substance: LAMOTRIGINE
     Indication: SEDATIVE THERAPY
  2. HALDOL [Concomitant]
     Active Substance: HALOPERIDOL
     Indication: SEDATIVE THERAPY
  3. XENAZINE [Suspect]
     Active Substance: TETRABENAZINE
     Indication: HUNTINGTON^S DISEASE
     Route: 065
     Dates: start: 20100809
  4. METORMIN [Concomitant]
     Active Substance: METFORMIN HYDROCHLORIDE
     Indication: TYPE 2 DIABETES MELLITUS
  5. TRAZODONE [Concomitant]
     Active Substance: TRAZODONE HYDROCHLORIDE
     Indication: SEDATIVE THERAPY

REACTIONS (2)
  - Lethargy [Unknown]
  - Sluggishness [Unknown]

NARRATIVE: CASE EVENT DATE: 20130429
